FAERS Safety Report 8951024 (Version 1)
Quarter: 2012Q4

REPORT INFORMATION
  Report Type: Spontaneous
  Country: US (occurrence: None)
  Receive Date: 20121203
  Receipt Date: 20121203
  Transmission Date: 20130627
  Serious: No
  Sender: FDA-Public Use
  Company Number: None

PATIENT

DRUGS (2)
  1. HUMULIN [Suspect]
  2. HUMALOG [Suspect]

REACTIONS (3)
  - Intercepted drug dispensing error [None]
  - Intercepted drug prescribing error [None]
  - Exposure during pregnancy [None]
